FAERS Safety Report 5755213-3 (Version None)
Quarter: 2008Q2

REPORT INFORMATION
  Report Type: 
  Country: None (occurrence: None)
  Receive Date: 20080602
  Receipt Date: 20080520
  Transmission Date: 20081010
  Serious: Yes (Hospitalization)
  Sender: FDA-Public Use
  Company Number: PL-NOVOPROD-267441

PATIENT
  Sex: Female
  Weight: 83 kg

DRUGS (4)
  1. INSULATARD PENFILL HM(GE) 3.0 ML [Suspect]
     Indication: TYPE 1 DIABETES MELLITUS
     Dosage: 36 IU, QD
     Route: 058
     Dates: start: 20070706, end: 20070801
  2. INSULIN LISPRO [Concomitant]
     Indication: TYPE 1 DIABETES MELLITUS
     Dosage: 24 IU, QD
     Route: 058
     Dates: start: 20041001, end: 20070801
  3. FOLIC ACID [Concomitant]
     Dosage: 15 MG, QD
     Route: 048
     Dates: start: 20070706
  4. LUTEIN [Concomitant]
     Dosage: 100 MG, QD
     Route: 048
     Dates: start: 20070709

REACTIONS (1)
  - INADEQUATE DIET [None]
